FAERS Safety Report 4498337-3 (Version None)
Quarter: 2004Q4

REPORT INFORMATION
  Report Type: 
  Country: None (occurrence: None)
  Receive Date: 20041104
  Receipt Date: 20041022
  Transmission Date: 20050328
  Serious: Yes (Hospitalization, Other)
  Sender: FDA-Public Use
  Company Number: 2004083441

PATIENT
  Age: 77 Year
  Sex: Male

DRUGS (1)
  1. ZOLOFT [Suspect]
     Indication: DEPRESSION
     Dosage: 25 MG (25 MG, 1 IN 1 D), ORAL
     Route: 048
     Dates: start: 20040101, end: 20040818

REACTIONS (8)
  - CEREBRAL DISORDER [None]
  - CEREBRAL INFARCTION [None]
  - CONFUSIONAL STATE [None]
  - DIARRHOEA [None]
  - DYSARTHRIA [None]
  - EYE DISORDER [None]
  - PERSONALITY CHANGE [None]
  - VOMITING [None]
